FAERS Safety Report 5578453-5 (Version None)
Quarter: 2007Q4

REPORT INFORMATION
  Report Type: 
  Country: None (occurrence: None)
  Receive Date: 20071227
  Receipt Date: 20071207
  Transmission Date: 20080405
  Serious: Yes (Hospitalization)
  Sender: FDA-Public Use
  Company Number: A-NJ2007-18789

PATIENT
  Age: 34 Year
  Sex: Male
  Weight: 83.4 kg

DRUGS (3)
  1. TRACLEER [Suspect]
     Indication: PULMONARY HYPERTENSION
     Dosage: 62.5 MG, BID, ORAL
     Route: 048
     Dates: start: 20071127, end: 20071210
  2. AMIODARONE HCL [Concomitant]
  3. LASIX [Concomitant]

REACTIONS (4)
  - NASAL CONGESTION [None]
  - PALPITATIONS [None]
  - PNEUMONIA [None]
  - PULMONARY OEDEMA [None]
